FAERS Safety Report 19577087 (Version 2)
Quarter: 2021Q3

REPORT INFORMATION
  Report Type: Spontaneous
  Country: JP (occurrence: JP)
  Receive Date: 20210719
  Receipt Date: 20210802
  Transmission Date: 20211014
  Serious: No
  Sender: FDA-Public Use
  Company Number: JP-GLAXOSMITHKLINE-JP2021148154

PATIENT
  Age: 70 Year
  Sex: Male

DRUGS (1)
  1. ZEFIX [Suspect]
     Active Substance: LAMIVUDINE
     Indication: LYMPHOMA
     Dosage: 0.1 DF

REACTIONS (2)
  - Product use in unapproved indication [Unknown]
  - Off label use [Unknown]
